FAERS Safety Report 24105466 (Version 1)
Quarter: 2024Q3

REPORT INFORMATION
  Report Type: Spontaneous
  Country: US (occurrence: None)
  Receive Date: 20240716
  Receipt Date: 20240716
  Transmission Date: 20241017
  Serious: Yes (Other)
  Sender: Public
  Company Number: None

PATIENT
  Age: 43 Year
  Sex: Female
  Weight: 69.75 kg

DRUGS (2)
  1. NURTEC ODT [Suspect]
     Active Substance: RIMEGEPANT SULFATE
     Indication: Migraine
     Dates: start: 20240627, end: 20240716
  2. CORTEF [Concomitant]
     Active Substance: HYDROCORTISONE

REACTIONS (5)
  - Eye swelling [None]
  - Chest discomfort [None]
  - Eye infection [None]
  - Vision blurred [None]
  - Urticaria [None]

NARRATIVE: CASE EVENT DATE: 20240701
